FAERS Safety Report 12128166 (Version 1)
Quarter: 2016Q1

REPORT INFORMATION
  Report Type: Spontaneous
  Country: GB (occurrence: GB)
  Receive Date: 20160229
  Receipt Date: 20160229
  Transmission Date: 20160526
  Serious: Yes (Hospitalization)
  Sender: FDA-Public Use
  Company Number: GB-SA-2016SA037330

PATIENT
  Age: 76 Year
  Sex: Female

DRUGS (3)
  1. FONDAPARINUX SODIUM. [Suspect]
     Active Substance: FONDAPARINUX SODIUM
     Indication: ACUTE CORONARY SYNDROME
     Route: 065
  2. ASPIRIN. [Suspect]
     Active Substance: ASPIRIN
     Indication: ACUTE CORONARY SYNDROME
     Route: 065
  3. CLOPIDOGREL BISULFATE. [Suspect]
     Active Substance: CLOPIDOGREL BISULFATE
     Indication: ACUTE CORONARY SYNDROME
     Route: 065

REACTIONS (6)
  - Hypoxia [Unknown]
  - Haemoptysis [Unknown]
  - Oxygen saturation decreased [Unknown]
  - Thrombosis [Unknown]
  - Respiratory arrest [Unknown]
  - Pulmonary function test decreased [Unknown]
